FAERS Safety Report 19291332 (Version 3)
Quarter: 2021Q3

REPORT INFORMATION
  Report Type: Spontaneous
  Country: US (occurrence: US)
  Receive Date: 20210523
  Receipt Date: 20210712
  Transmission Date: 20211014
  Serious: Yes (Other)
  Sender: FDA-Public Use
  Company Number: US-SA-2021SA166583

PATIENT
  Age: 74 Year
  Sex: Female

DRUGS (1)
  1. LANTUS [Suspect]
     Active Substance: INSULIN GLARGINE
     Indication: TYPE 2 DIABETES MELLITUS
     Dosage: 10 IU, QD, NIGHTLY
     Route: 065

REACTIONS (4)
  - Drug ineffective [Unknown]
  - Product odour abnormal [Unknown]
  - Diabetes mellitus inadequate control [Unknown]
  - Urine odour abnormal [Unknown]
